FAERS Safety Report 9451057 (Version 1)
Quarter: 2013Q3

REPORT INFORMATION
  Report Type: Spontaneous
  Country: US (occurrence: None)
  Receive Date: 20130807
  Receipt Date: 20130807
  Transmission Date: 20140515
  Serious: Yes (Other)
  Sender: FDA-Public Use
  Company Number: AUR-APL-2013-06526

PATIENT
  Age: 51 Year
  Sex: Male

DRUGS (6)
  1. ZIDOVUDINE (ZIDOVUDINE) [Suspect]
     Indication: PROGRESSIVE MULTIFOCAL LEUKOENCEPHALOPATHY
  2. ZIDOVUDINE (ZIDOVUDINE) [Suspect]
     Indication: HIV INFECTION
  3. LAMIVUDINE [Suspect]
     Indication: PROGRESSIVE MULTIFOCAL LEUKOENCEPHALOPATHY
  4. LAMIVUDINE [Suspect]
     Indication: HIV INFECTION
  5. SAQUINAVIR [Suspect]
     Indication: PROGRESSIVE MULTIFOCAL LEUKOENCEPHALOPATHY
  6. SAQUINAVIR [Suspect]
     Indication: HIV INFECTION

REACTIONS (5)
  - Immune reconstitution inflammatory syndrome [None]
  - Dizziness [None]
  - Visual impairment [None]
  - Ataxia [None]
  - Progressive multifocal leukoencephalopathy [None]
